FAERS Safety Report 4742837-5 (Version None)
Quarter: 2005Q3

REPORT INFORMATION
  Report Type: 
  Country: None (occurrence: None)
  Receive Date: 20050811
  Receipt Date: 20050810
  Transmission Date: 20060218
  Serious: Yes (Hospitalization)
  Sender: FDA-Public Use
  Company Number: DE-GLAXOSMITHKLINE-D0047269A

PATIENT
  Sex: Female

DRUGS (1)
  1. ZEFFIX [Suspect]
     Route: 065
     Dates: start: 20030101

REACTIONS (2)
  - CARDIAC FAILURE [None]
  - IRON DEFICIENCY ANAEMIA [None]
